FAERS Safety Report 4635663-9 (Version None)
Quarter: 2005Q2

REPORT INFORMATION
  Report Type: 
  Country: None (occurrence: None)
  Receive Date: 20050414
  Receipt Date: 20050331
  Transmission Date: 20051028
  Serious: Yes (Hospitalization)
  Sender: FDA-Public Use
  Company Number: GBWYE548031MAR05

PATIENT
  Age: 58 Year
  Sex: Male

DRUGS (5)
  1. ADVIL [Suspect]
     Indication: OSTEOARTHRITIS
     Dosage: 400 MG 3X PER 1 DAY ORAL
     Route: 048
     Dates: start: 20050201, end: 20050301
  2. ARCOXIA [Suspect]
     Indication: OSTEOARTHRITIS
     Dosage: 40 MG 3X PER 1 DAY ORAL
     Route: 048
     Dates: start: 20050201, end: 20050301
  3. SERTRALINE (SERTRALINE) [Concomitant]
  4. ATENOLOL [Concomitant]
  5. BENDROFLUAZIDE (BENDROFLUMETHIAZIDE) [Concomitant]

REACTIONS (4)
  - GASTRIC ULCER [None]
  - HAEMATEMESIS [None]
  - MELAENA [None]
  - VARICES OESOPHAGEAL [None]
